FAERS Safety Report 14655190 (Version 4)
Quarter: 2024Q1

REPORT INFORMATION
  Report Type: Spontaneous
  Country: IT (occurrence: IT)
  Receive Date: 20180319
  Receipt Date: 20240315
  Transmission Date: 20240409
  Serious: Yes (Death, Other)
  Sender: FDA-Public Use
  Company Number: None

PATIENT
  Age: 39 Year
  Sex: Male

DRUGS (8)
  1. IRINOTECAN [Suspect]
     Active Substance: IRINOTECAN
     Indication: Ewing^s sarcoma
     Dosage: 75 MILLIGRAM/SQ. METER, CYCLE
     Route: 042
     Dates: start: 20131016, end: 20140711
  2. GEMCITABINE [Suspect]
     Active Substance: GEMCITABINE
     Indication: Product used for unknown indication
     Dosage: UNK
     Route: 065
  3. CARBOPLATIN [Suspect]
     Active Substance: CARBOPLATIN
     Indication: Product used for unknown indication
     Dosage: UNK
     Route: 065
  4. CARBOPLATIN [Suspect]
     Active Substance: CARBOPLATIN
     Dosage: UNK
     Route: 065
  5. ETOPOSIDE [Suspect]
     Active Substance: ETOPOSIDE
     Indication: Product used for unknown indication
     Dosage: UNK
     Route: 065
  6. DOCETAXEL [Suspect]
     Active Substance: DOCETAXEL\DOCETAXEL ANHYDROUS
     Indication: Product used for unknown indication
     Dosage: UNK
     Route: 065
  7. YONDELIS [Suspect]
     Active Substance: TRABECTEDIN
     Indication: Ewing^s sarcoma
     Dosage: 1 MILLIGRAM/SQ. METER, CYCLE
     Route: 042
     Dates: start: 20130918, end: 20140708
  8. DEXAMETHASONE [Concomitant]
     Active Substance: DEXAMETHASONE
     Indication: Premedication
     Dosage: 20 MILLIGRAM/SQ. METER
     Route: 042

REACTIONS (10)
  - Transaminases increased [Fatal]
  - Cerebrovascular accident [Fatal]
  - Haematotoxicity [Fatal]
  - Hepatotoxicity [Fatal]
  - Diarrhoea [Fatal]
  - Off label use [Fatal]
  - Sudden death [Fatal]
  - Ewing^s sarcoma [Unknown]
  - Pulmonary mass [Recovered/Resolved]
  - Hypertransaminasaemia [Unknown]
